FAERS Safety Report 4818189-9 (Version None)
Quarter: 2005Q4

REPORT INFORMATION
  Report Type: 
  Country: None (occurrence: None)
  Receive Date: 20051031
  Receipt Date: 20051031
  Transmission Date: 20060501
  Serious: Yes (Hospitalization)
  Sender: FDA-Public Use
  Company Number: None

PATIENT
  Age: 63 Year
  Sex: Male
  Weight: 89.8122 kg

DRUGS (3)
  1. SIMVASTATIN [Suspect]
     Dosage: 80 MG QD (HS W/ FOOD)
     Dates: start: 20050608, end: 20050719
  2. GEMFIBROZIL [Suspect]
     Dosage: 600 MG PO BID W/ FOOD
     Route: 048
     Dates: start: 20050422, end: 20050719
  3. NIASPAN [Suspect]
     Dosage: 500 MG BID
     Dates: start: 20050207, end: 20050719

REACTIONS (6)
  - ASTHENIA [None]
  - DIZZINESS [None]
  - FALL [None]
  - MOVEMENT DISORDER [None]
  - MYALGIA [None]
  - MYOPATHY [None]
